FAERS Safety Report 6022807-X (Version None)
Quarter: 2008Q4

REPORT INFORMATION
  Report Type: 
  Country: None (occurrence: None)
  Receive Date: 20081230
  Receipt Date: 20081218
  Transmission Date: 20090506
  Serious: Yes (Hospitalization, Other)
  Sender: FDA-Public Use
  Company Number: GB-ELI_LILLY_AND_COMPANY-GB200809005319

PATIENT
  Sex: Male

DRUGS (10)
  1. ZYPREXA [Suspect]
     Indication: ANXIETY
     Dosage: 5 MG, 2/D
     Dates: start: 20010101, end: 20060101
  2. FLUOXETINE [Concomitant]
  3. ALBUTEROL SULFATE [Concomitant]
  4. ALOPURINOL [Concomitant]
  5. ISODUR [Concomitant]
  6. VOLTAREN [Concomitant]
  7. FRUSEMIDE [Concomitant]
  8. GABAPENTIN [Concomitant]
  9. ASPIRIN [Concomitant]
  10. LIPITOR [Concomitant]

REACTIONS (2)
  - ATRIOVENTRICULAR BLOCK SECOND DEGREE [None]
  - NEUROSIS [None]
